FAERS Safety Report 9558870 (Version 2)
Quarter: 2014Q1

REPORT INFORMATION
  Report Type: Spontaneous
  Country: IE (occurrence: IE)
  Receive Date: 20130927
  Receipt Date: 20140116
  Transmission Date: 20141002
  Serious: Yes (Other)
  Sender: FDA-Public Use
  Company Number: IE-ROCHE-1281563

PATIENT
  Sex: Male

DRUGS (8)
  1. LUCENTIS [Suspect]
     Indication: AGE-RELATED MACULAR DEGENERATION
     Route: 050
     Dates: start: 201102
  2. ZOTON [Concomitant]
  3. ASPIRIN [Concomitant]
  4. LIPITOR [Concomitant]
  5. DICLOFENAC SODIUM [Concomitant]
  6. FOSAMAX [Concomitant]
  7. DELTA-CORTRIL [Concomitant]
  8. CALCICHEW [Concomitant]

REACTIONS (1)
  - Transient ischaemic attack [Recovered/Resolved]
